FAERS Safety Report 9434212 (Version 1)
Quarter: 2013Q3

REPORT INFORMATION
  Report Type: Spontaneous
  Country: US (occurrence: None)
  Receive Date: 20130730
  Receipt Date: 20130730
  Transmission Date: 20140515
  Serious: No
  Sender: FDA-Public Use
  Company Number: None

PATIENT
  Sex: Female
  Weight: 56.8 kg

DRUGS (1)
  1. SIMPONI [Suspect]
     Indication: RHEUMATOID ARTHRITIS
     Dosage: 50MG ONCE A MONTH SUBCUTANEOUSLY?FALL OF 2011 TO APRIL/MAY 2012?RESTARTING 08/01/2013
     Route: 058
     Dates: start: 2011, end: 2012

REACTIONS (1)
  - Oral neoplasm [None]
